FAERS Safety Report 7661202-4 (Version None)
Quarter: 2011Q3

REPORT INFORMATION
  Report Type: 
  Country: None (occurrence: None)
  Receive Date: 20110805
  Receipt Date: 20101112
  Transmission Date: 20111222
  Serious: No
  Sender: FDA-Public Use
  Company Number: US-ABBOTT-10P-163-0685271-00

PATIENT
  Sex: Male
  Weight: 72.64 kg

DRUGS (5)
  1. METOPROLOL TARTRATE [Concomitant]
     Indication: BLOOD PRESSURE
     Dates: start: 20020101
  2. SINGULAIR [Concomitant]
     Indication: ALLERGIC SINUSITIS
     Dates: start: 20050101
  3. NIASPAN [Suspect]
     Indication: BLOOD CHOLESTEROL
     Dates: start: 20101001
  4. NIASPAN [Suspect]
     Dates: start: 20100901, end: 20101001
  5. CRESTOR [Concomitant]
     Indication: BLOOD CHOLESTEROL
     Dates: start: 20020101

REACTIONS (2)
  - MYALGIA [None]
  - BLOOD PRESSURE INCREASED [None]
